FAERS Safety Report 23397842 (Version 3)
Quarter: 2024Q2

REPORT INFORMATION
  Report Type: Spontaneous
  Country: US (occurrence: US)
  Receive Date: 20240112
  Receipt Date: 20240401
  Transmission Date: 20240716
  Serious: Yes (Hospitalization, Other)
  Sender: FDA-Public Use
  Company Number: US-Accord-400471

PATIENT
  Age: 61 Year
  Sex: Male
  Weight: 70.5 kg

DRUGS (29)
  1. CARBOPLATIN [Suspect]
     Active Substance: CARBOPLATIN
     Indication: Diffuse large B-cell lymphoma
     Dosage: 1Q3W
     Route: 042
     Dates: start: 20231017
  2. ETOPOSIDE [Suspect]
     Active Substance: ETOPOSIDE
     Indication: Diffuse large B-cell lymphoma
     Dosage: CYCLE 1 ARM 10
     Route: 042
     Dates: start: 20231016, end: 20231018
  3. RITUXIMAB [Suspect]
     Active Substance: RITUXIMAB
     Indication: Diffuse large B-cell lymphoma
     Dosage: CYCLE 1 ARM 10
     Route: 042
     Dates: start: 20231016
  4. IFOSFAMIDE [Suspect]
     Active Substance: IFOSFAMIDE
     Indication: Diffuse large B-cell lymphoma
     Dosage: CYCLE 1 ARM 10
     Route: 042
     Dates: start: 20231017, end: 20231018
  5. EPCORITAMAB [Suspect]
     Active Substance: EPCORITAMAB
     Indication: Diffuse large B-cell lymphoma
     Dosage: C1D1
     Route: 058
     Dates: start: 20231016, end: 20231016
  6. LEVAQUIN [Concomitant]
     Active Substance: LEVOFLOXACIN
     Dates: start: 20220227
  7. PROTONIX [Concomitant]
     Active Substance: PANTOPRAZOLE SODIUM
     Dates: start: 2022
  8. NORCO [Concomitant]
     Active Substance: ACETAMINOPHEN\HYDROCODONE BITARTRATE
     Dates: start: 2022
  9. Dulcolax [Concomitant]
     Dates: start: 2020
  10. TYLENOL [Concomitant]
     Active Substance: ACETAMINOPHEN
     Dosage: EXTRA STRENGTH
     Dates: start: 2020
  11. ZYLOPRIM [Concomitant]
     Active Substance: ALLOPURINOL
     Dates: start: 20220211
  12. ZOVIRAX [Concomitant]
     Active Substance: ACYCLOVIR
     Dates: start: 20220225
  13. FLEXERIL [Concomitant]
     Active Substance: CYCLOBENZAPRINE HYDROCHLORIDE
     Dates: start: 2021
  14. BIOTIN [Concomitant]
     Active Substance: BIOTIN
     Dates: start: 2020
  15. VITAMIN C [Concomitant]
     Active Substance: ASCORBIC ACID
     Dates: start: 2020
  16. ZINCATE [Concomitant]
     Dates: start: 2020
  17. ELIQUIS [Concomitant]
     Active Substance: APIXABAN
     Dates: start: 20220225
  18. NEURONTIN [Concomitant]
     Active Substance: GABAPENTIN
     Dates: start: 2022
  19. VITAMIN D3 [Concomitant]
     Active Substance: CHOLECALCIFEROL
     Dates: start: 2020
  20. ESTRACE [Concomitant]
     Active Substance: ESTRADIOL
     Dates: start: 2012
  21. PROSCAR [Concomitant]
     Active Substance: FINASTERIDE
     Dates: start: 2012
  22. PROMETRIUM [Concomitant]
     Active Substance: PROGESTERONE
     Dates: start: 2012
  23. BENADRYL [Concomitant]
     Active Substance: DIPHENHYDRAMINE HYDROCHLORIDE
     Dosage: 25 MG
     Route: 042
     Dates: start: 20231218, end: 20231218
  24. ETOPOSIDE [Suspect]
     Active Substance: ETOPOSIDE
     Indication: Diffuse large B-cell lymphoma
     Dosage: CYCLE 2 ARM 10
     Route: 042
     Dates: start: 20231113, end: 20231115
  25. IFOSFAMIDE [Suspect]
     Active Substance: IFOSFAMIDE
     Indication: Diffuse large B-cell lymphoma
     Dosage: CYCLE 2 ARM 10
     Route: 042
     Dates: start: 20231114, end: 20231115
  26. EPCORITAMAB [Suspect]
     Active Substance: EPCORITAMAB
     Indication: Diffuse large B-cell lymphoma
     Dosage: C1D8
     Route: 058
     Dates: start: 20231025, end: 20231025
  27. EPCORITAMAB [Suspect]
     Active Substance: EPCORITAMAB
     Indication: Diffuse large B-cell lymphoma
     Dosage: C1D15- ONWARDS
     Route: 058
     Dates: start: 20231101
  28. ETOPOSIDE [Suspect]
     Active Substance: ETOPOSIDE
     Indication: Diffuse large B-cell lymphoma
     Dosage: C3
     Route: 042
     Dates: start: 20231211, end: 20231213
  29. IFOSFAMIDE [Suspect]
     Active Substance: IFOSFAMIDE
     Indication: Diffuse large B-cell lymphoma
     Dosage: CYCLE 2
     Route: 042
     Dates: start: 20231212, end: 20231213

REACTIONS (1)
  - Epistaxis [Recovered/Resolved]

NARRATIVE: CASE EVENT DATE: 20231224
